FAERS Safety Report 6793589-9 (Version None)
Quarter: 2010Q2

REPORT INFORMATION
  Report Type: 
  Country: None (occurrence: None)
  Receive Date: 20100624
  Receipt Date: 20090107
  Transmission Date: 20101027
  Serious: Yes (Hospitalization)
  Sender: FDA-Public Use
  Company Number: US-PFIZER INC-2008097793

PATIENT
  Sex: Male

DRUGS (10)
  1. ARGATROBAN [Suspect]
     Dosage: 1.5MCG/KG/MIN
     Route: 042
     Dates: start: 20081115, end: 20081117
  2. ALLOPURINOL [Concomitant]
  3. COZAAR [Concomitant]
  4. TYLENOL [Concomitant]
  5. BUMETANIDE [Concomitant]
  6. DILAUDID [Concomitant]
  7. HYDROXYZINE [Concomitant]
  8. TOPROL-XL [Concomitant]
  9. SPIRONOLACTONE [Concomitant]
  10. ALL OTHER THERAPEUTIC PRODUCTS [Concomitant]

REACTIONS (1)
  - INTERNATIONAL NORMALISED RATIO INCREASED [None]
